FAERS Safety Report 5527179-2 (Version None)
Quarter: 2007Q4

REPORT INFORMATION
  Report Type: 
  Country: None (occurrence: None)
  Receive Date: 20071121
  Receipt Date: 20071113
  Transmission Date: 20080405
  Serious: Yes (Other)
  Sender: FDA-Public Use
  Company Number: US021731

PATIENT
  Age: 36 Year
  Sex: Female

DRUGS (1)
  1. PROVIGIL [Suspect]
     Dosage: ONCE ORAL
     Route: 048
     Dates: start: 20030611, end: 20030611

REACTIONS (1)
  - SUICIDE ATTEMPT [None]
